FAERS Safety Report 6332612-2 (Version None)
Quarter: 2009Q3

REPORT INFORMATION
  Report Type: 
  Country: None (occurrence: None)
  Receive Date: 20090828
  Receipt Date: 20090820
  Transmission Date: 20100115
  Serious: Yes (Other)
  Sender: FDA-Public Use
  Company Number: US-ROCHE-649078

PATIENT
  Age: 76 Year
  Sex: Female

DRUGS (5)
  1. BONIVA [Suspect]
     Indication: OSTEOPOROSIS
     Route: 048
     Dates: start: 20080101
  2. FEMARA [Concomitant]
  3. CALCIUM [Concomitant]
     Dosage: DRUG REPORTED AS: CALCIUM W/D.
  4. VITAMIN [Concomitant]
     Dosage: DRUG REPORTED AS: LOTS OF VITAMINS.
  5. ATENOLOL [Concomitant]

REACTIONS (2)
  - GINGIVAL BLEEDING [None]
  - RESORPTION BONE INCREASED [None]
